FAERS Safety Report 16813811 (Version 1)
Quarter: 2019Q3

REPORT INFORMATION
  Report Type: Spontaneous
  Country: JP (occurrence: JP)
  Receive Date: 20190917
  Receipt Date: 20190917
  Transmission Date: 20191005
  Serious: Yes (Hospitalization)
  Sender: FDA-Public Use
  Company Number: JP-TEVA-2019-JP-1108444

PATIENT
  Age: 62 Year
  Sex: Female
  Weight: 42 kg

DRUGS (8)
  1. PROPOFOL. [Suspect]
     Active Substance: PROPOFOL
     Indication: ANAESTHESIA
     Dosage: ADMINISTERED DURING ELECTROCONVULSIVE THERAPY
     Route: 042
  2. IMIPRAMINE [Suspect]
     Active Substance: IMIPRAMINE
     Indication: DELUSION
  3. IMIPRAMINE [Suspect]
     Active Substance: IMIPRAMINE
     Indication: SUICIDAL IDEATION
     Dosage: 150 MILLIGRAM DAILY;
     Route: 065
  4. SUCCINYLCHOLINE [Concomitant]
     Active Substance: SUCCINYLCHOLINE
     Indication: ANAESTHESIA
     Dosage: ADMINISTERED DURING ELECTROCONVULSIVE THERAPY, ALONG WITH PROPOFOL.
     Route: 042
  5. OLANZAPINE. [Suspect]
     Active Substance: OLANZAPINE
     Indication: ANXIETY
  6. OLANZAPINE. [Suspect]
     Active Substance: OLANZAPINE
     Indication: DELUSION
  7. IMIPRAMINE [Suspect]
     Active Substance: IMIPRAMINE
     Indication: ANXIETY
  8. OLANZAPINE. [Suspect]
     Active Substance: OLANZAPINE
     Indication: SUICIDAL IDEATION
     Dosage: 20 MILLIGRAM DAILY;
     Route: 065

REACTIONS (2)
  - Cardiac arrest [Recovered/Resolved]
  - Drug ineffective [Unknown]
